FAERS Safety Report 19760844 (Version 1)
Quarter: 2021Q3

REPORT INFORMATION
  Report Type: Spontaneous
  Country: US (occurrence: US)
  Receive Date: 20210829
  Receipt Date: 20210829
  Transmission Date: 20211014
  Serious: No
  Sender: FDA-Public Use
  Company Number: None

PATIENT
  Age: 46 Year
  Sex: Female
  Weight: 98.9 kg

DRUGS (4)
  1. KETOROLAC 15MG IV X 1 [Concomitant]
     Dates: start: 20210828
  2. LOPERAMINDE 4MG X 1 [Concomitant]
     Dates: start: 20210828
  3. ONDANSETRON 4MG IV X 1 [Concomitant]
     Dates: start: 20210828
  4. REGEN?COV [Suspect]
     Active Substance: CASIRIVIMAB\IMDEVIMAB
     Dosage: ?          OTHER FREQUENCY:ONCE;?
     Route: 041
     Dates: start: 20210828, end: 20210828

REACTIONS (1)
  - Chest discomfort [None]

NARRATIVE: CASE EVENT DATE: 20210828
